FAERS Safety Report 6433786-5 (Version None)
Quarter: 2009Q4

REPORT INFORMATION
  Report Type: 
  Country: None (occurrence: None)
  Receive Date: 20091110
  Receipt Date: 20090730
  Transmission Date: 20100525
  Serious: No
  Sender: FDA-Public Use
  Company Number: A0799676A

PATIENT
  Age: 47 Year
  Sex: Female

DRUGS (7)
  1. ALTABAX [Suspect]
     Indication: BACTERIAL INFECTION
     Dosage: 1APP TWICE PER DAY
     Route: 061
     Dates: start: 20090709
  2. BACTROBAN [Suspect]
     Indication: BACTERIAL INFECTION
     Route: 061
     Dates: start: 20090611, end: 20090708
  3. BACTROBAN [Suspect]
     Route: 061
     Dates: start: 20090604, end: 20090610
  4. ORAP [Concomitant]
  5. ERYTHROMYCIN [Concomitant]
  6. BACTRIM [Concomitant]
  7. SYNALAR CREAM [Concomitant]

REACTIONS (2)
  - APPLICATION SITE PAIN [None]
  - DRUG INEFFECTIVE [None]
